FAERS Safety Report 5768394-2 (Version None)
Quarter: 2008Q2

REPORT INFORMATION
  Report Type: 
  Country: None (occurrence: None)
  Receive Date: 20080612
  Receipt Date: 20080303
  Transmission Date: 20081010
  Serious: No
  Sender: FDA-Public Use
  Company Number: US-ABBOTT-08P-163-0440853-00

PATIENT
  Sex: Male
  Weight: 60.382 kg

DRUGS (7)
  1. HUMIRA [Suspect]
     Indication: CROHN'S DISEASE
     Route: 058
     Dates: start: 20070601, end: 20070601
  2. HUMIRA [Suspect]
     Route: 058
     Dates: start: 20070601
  3. MESALAMINE [Concomitant]
     Indication: CROHN'S DISEASE
     Route: 048
  4. MERCAPTOPURINE [Concomitant]
     Indication: CROHN'S DISEASE
     Route: 048
  5. CIPROFLOXACIN HCL [Concomitant]
     Indication: CROHN'S DISEASE
     Route: 048
  6. ALLOPURINOL [Concomitant]
     Indication: CROHN'S DISEASE
     Route: 048
  7. FLUXOTINE [Concomitant]
     Indication: DEPRESSION
     Route: 048

REACTIONS (1)
  - INJECTION SITE PAIN [None]
